FAERS Safety Report 7224672-1 (Version None)
Quarter: 2011Q1

REPORT INFORMATION
  Report Type: 
  Country: None (occurrence: None)
  Receive Date: 20110113
  Receipt Date: 20110106
  Transmission Date: 20110831
  Serious: Yes (Death)
  Sender: FDA-Public Use
  Company Number: US-JNJFOC-20110101758

PATIENT
  Age: 51 Year
  Sex: Male

DRUGS (2)
  1. ACETAMINOPHEN [Suspect]
     Indication: POISONING DELIBERATE
  2. ACETAMINOPHEN [Suspect]

REACTIONS (2)
  - TOXICITY TO VARIOUS AGENTS [None]
  - INTENTIONAL DRUG MISUSE [None]
